FAERS Safety Report 6618172-7 (Version None)
Quarter: 2010Q1

REPORT INFORMATION
  Report Type: 
  Country: None (occurrence: None)
  Receive Date: 20100308
  Receipt Date: 20100226
  Transmission Date: 20100710
  Serious: Yes (Other)
  Sender: FDA-Public Use
  Company Number: UY-ROCHE-688474

PATIENT
  Sex: Female
  Weight: 66.6 kg

DRUGS (9)
  1. ORLISTAT [Suspect]
     Route: 048
     Dates: start: 20100110, end: 20100130
  2. ORLISTAT [Suspect]
     Route: 048
  3. CALCIUM CASEINATE [Suspect]
     Indication: OSTEOPOROSIS
     Route: 048
     Dates: start: 20100115, end: 20100210
  4. VITAMIN D [Concomitant]
     Indication: OSTEOPOROSIS
     Dosage: DOSE: 400 UI EVERY 24 HRS, DRUG: VITAMIN D
     Route: 048
     Dates: start: 20100115, end: 20100210
  5. OMEPRAZOL [Concomitant]
     Indication: GASTRITIS
     Route: 048
     Dates: start: 20090101
  6. ALPRAZOLAM [Concomitant]
     Indication: ANXIETY
     Route: 048
     Dates: start: 20090101
  7. DOMPERIDONE [Concomitant]
     Indication: ILL-DEFINED DISORDER
     Route: 048
     Dates: start: 20090101
  8. SIMETICONE [Concomitant]
     Indication: FLATULENCE
     Route: 048
     Dates: start: 20090101
  9. MERCAPTOPURINE [Concomitant]
     Dosage: DRUG: MERCATO PURINE, START DATE: SINCE SHE HAD AUTOIMMUNE HEPATITIS THREE YEARS AGO

REACTIONS (1)
  - FAECES PALE [None]
